FAERS Safety Report 17884127 (Version 1)
Quarter: 2020Q2

REPORT INFORMATION
  Report Type: Spontaneous
  Country: CA (occurrence: CA)
  Receive Date: 20200611
  Receipt Date: 20200611
  Transmission Date: 20200714
  Serious: Yes (Other)
  Sender: FDA-Public Use
  Company Number: CA-TEVA-2020-CA-1247109

PATIENT
  Age: 55 Year
  Sex: Female
  Weight: 48 kg

DRUGS (2)
  1. OXALIPLATIN INJECTION 50MG/10ML + 100MG/20ML SINGLE USE VIALS [Suspect]
     Active Substance: OXALIPLATIN
     Route: 041
  2. CAPECITABINE. [Concomitant]
     Active Substance: CAPECITABINE

REACTIONS (5)
  - Swollen tongue [Unknown]
  - Aphasia [Unknown]
  - Dysphagia [Unknown]
  - Pharyngeal swelling [Unknown]
  - Similar reaction on previous exposure to drug [Unknown]
